FAERS Safety Report 11820971 (Version 1)
Quarter: 2015Q4

REPORT INFORMATION
  Report Type: Spontaneous
  Country: US (occurrence: US)
  Receive Date: 20151210
  Receipt Date: 20151210
  Transmission Date: 20160305
  Serious: No
  Sender: FDA-Public Use
  Company Number: US-JNJFOC-20150723595

PATIENT
  Sex: Female

DRUGS (19)
  1. CENTRUM SILVER [Concomitant]
     Active Substance: MINERALS\VITAMINS
  2. HYDROCHLOROTHIAZIDE. [Concomitant]
     Active Substance: HYDROCHLOROTHIAZIDE
  3. PLAQUENIL [Concomitant]
     Active Substance: HYDROXYCHLOROQUINE SULFATE
  4. MEDROL [Concomitant]
     Active Substance: METHYLPREDNISOLONE
  5. ADVIL [Concomitant]
     Active Substance: IBUPROFEN
  6. REFRESH [Concomitant]
     Active Substance: UNSPECIFIED INGREDIENT
  7. BENICAR [Concomitant]
     Active Substance: OLMESARTAN MEDOXOMIL
  8. THERATEARS [Concomitant]
     Active Substance: CARBOXYMETHYLCELLULOSE SODIUM
  9. LESCOL [Concomitant]
     Active Substance: FLUVASTATIN SODIUM
  10. LOTEMAX [Concomitant]
     Active Substance: LOTEPREDNOL ETABONATE
  11. ASPIRIN. [Concomitant]
     Active Substance: ASPIRIN
  12. STOOL SOFTENER [Concomitant]
     Active Substance: DOCUSATE CALCIUM
  13. ZETIA [Concomitant]
     Active Substance: EZETIMIBE
  14. CALTRATE [Concomitant]
     Active Substance: CALCIUM CARBONATE
  15. OMEGA 3 [Concomitant]
     Active Substance: OMEGA-3 FATTY ACIDS
  16. EVOXAC [Concomitant]
     Active Substance: CEVIMELINE HYDROCHLORIDE
  17. VITAMIN D [Concomitant]
     Active Substance: CHOLECALCIFEROL
  18. INDERAL [Concomitant]
     Active Substance: PROPRANOLOL HYDROCHLORIDE
  19. IMBRUVICA [Suspect]
     Active Substance: IBRUTINIB
     Indication: CHRONIC LYMPHOCYTIC LEUKAEMIA
     Route: 048

REACTIONS (1)
  - Ingrowing nail [Unknown]
